FAERS Safety Report 24028057 (Version 1)
Quarter: 2024Q2

REPORT INFORMATION
  Report Type: Spontaneous
  Country: MX (occurrence: MX)
  Receive Date: 20240628
  Receipt Date: 20240628
  Transmission Date: 20240716
  Serious: Yes (Hospitalization)
  Sender: FDA-Public Use
  Company Number: MX-ROCHE-10000004690

PATIENT
  Sex: Female

DRUGS (2)
  1. CLONAZEPAM [Interacting]
     Active Substance: CLONAZEPAM
     Indication: Product used for unknown indication
  2. LAMICTAL [Interacting]
     Active Substance: LAMOTRIGINE
     Indication: Epilepsy

REACTIONS (4)
  - Syncope [Unknown]
  - Fall [Unknown]
  - Off label use [Unknown]
  - Drug interaction [Unknown]
